FAERS Safety Report 15809167 (Version 1)
Quarter: 2019Q1

REPORT INFORMATION
  Report Type: Spontaneous
  Country: US (occurrence: US)
  Receive Date: 20190110
  Receipt Date: 20190110
  Transmission Date: 20190417
  Serious: Yes (Death)
  Sender: FDA-Public Use
  Company Number: US-RIGEL PHARMACEUTICALS, INC.-2018FOS000264

PATIENT
  Sex: Female
  Weight: 115.65 kg

DRUGS (1)
  1. TAVALISSE [Suspect]
     Active Substance: FOSTAMATINIB
     Indication: IMMUNE THROMBOCYTOPENIC PURPURA
     Dosage: 150 MG
     Route: 048
     Dates: start: 20180821

REACTIONS (2)
  - Death [Fatal]
  - Intentional product misuse [Unknown]

NARRATIVE: CASE EVENT DATE: 2018
